FAERS Safety Report 6737837-X (Version None)
Quarter: 2010Q2

REPORT INFORMATION
  Report Type: 
  Country: None (occurrence: None)
  Receive Date: 20100520
  Receipt Date: 20100507
  Transmission Date: 20101027
  Serious: Yes (Other)
  Sender: FDA-Public Use
  Company Number: 584762

PATIENT
  Age: 17 Year
  Sex: Male

DRUGS (3)
  1. ETOPOSIDE [Suspect]
     Indication: EWING'S SARCOMA METASTATIC
  2. IDARUBICIN HCL [Suspect]
     Indication: EWING'S SARCOMA METASTATIC
  3. CYTOXAN [Suspect]
     Indication: EWING'S SARCOMA METASTATIC

REACTIONS (1)
  - ACUTE MYELOID LEUKAEMIA [None]
